FAERS Safety Report 7709723-X (Version None)
Quarter: 2011Q3

REPORT INFORMATION
  Report Type: 
  Country: None (occurrence: None)
  Receive Date: 20110819
  Receipt Date: 20110808
  Transmission Date: 20111222
  Serious: Yes (Other)
  Sender: FDA-Public Use
  Company Number: 1014324

PATIENT
  Age: 68 Year
  Sex: Female

DRUGS (1)
  1. DEXAMETHASONE [Suspect]
     Indication: SEDATION
     Dosage: SEE IMAGE
     Route: 042

REACTIONS (4)
  - HYPOTENSION [None]
  - BRADYCARDIA [None]
  - URINE OUTPUT DECREASED [None]
  - CARDIAC FAILURE [None]
